FAERS Safety Report 20918757 (Version 1)
Quarter: 2022Q2

REPORT INFORMATION
  Report Type: Spontaneous
  Country: US (occurrence: None)
  Receive Date: 20220605
  Receipt Date: 20220605
  Transmission Date: 20220720
  Serious: No
  Sender: FDA-Public Use
  Company Number: None

PATIENT
  Age: 72 Year
  Sex: Female
  Weight: 81.6 kg

DRUGS (1)
  1. PAXLOVID [Suspect]
     Active Substance: NIRMATRELVIR\RITONAVIR
     Dates: start: 20220602

REACTIONS (1)
  - Product prescribing error [None]

NARRATIVE: CASE EVENT DATE: 20220602
